FAERS Safety Report 16161306 (Version 2)
Quarter: 2020Q2

REPORT INFORMATION
  Report Type: Spontaneous
  Country: US (occurrence: US)
  Receive Date: 20190405
  Receipt Date: 20200430
  Transmission Date: 20200713
  Serious: No
  Sender: FDA-Public Use
  Company Number: US-TEVA-2019-US-1032339

PATIENT
  Age: 52 Year

DRUGS (4)
  1. ELETRIPTAN HYDROBROMIDE. [Suspect]
     Active Substance: ELETRIPTAN HYDROBROMIDE
     Indication: MIGRAINE
  2. PREVACID [Concomitant]
     Active Substance: LANSOPRAZOLE
  3. HCTZ [Concomitant]
     Active Substance: HYDROCHLOROTHIAZIDE
  4. BENICAR [Concomitant]
     Active Substance: OLMESARTAN MEDOXOMIL

REACTIONS (10)
  - Photophobia [Unknown]
  - Vision blurred [Unknown]
  - Dizziness [Unknown]
  - Drug ineffective [Unknown]
  - Nausea [Recovered/Resolved]
  - Product packaging issue [Unknown]
  - Product substitution issue [Unknown]
  - Somnolence [Unknown]
  - Pain [Unknown]
  - Frustration tolerance decreased [Unknown]

NARRATIVE: CASE EVENT DATE: 20190202
